FAERS Safety Report 21594808 (Version 1)
Quarter: 2022Q4

REPORT INFORMATION
  Report Type: Spontaneous
  Country: FR (occurrence: FR)
  Receive Date: 20221115
  Receipt Date: 20221115
  Transmission Date: 20230113
  Serious: Yes (Hospitalization)
  Sender: FDA-Public Use
  Company Number: FR-BIOVITRUM-2022FR11233

PATIENT

DRUGS (3)
  1. PEGCETACOPLAN [Suspect]
     Active Substance: PEGCETACOPLAN
     Dosage: 1080 MILLIGRAM
     Route: 058
     Dates: start: 20220923
  2. CLAFORAN [Concomitant]
     Active Substance: CEFOTAXIME SODIUM
     Indication: Product used for unknown indication
     Dates: start: 20220920, end: 20220927
  3. SOLIRIS [Concomitant]
     Active Substance: ECULIZUMAB
     Indication: Product used for unknown indication
     Dates: start: 20220920

REACTIONS (5)
  - Nasal dryness [Unknown]
  - Dry eye [Unknown]
  - Palpitations [Recovered/Resolved]
  - Bruxism [Unknown]
  - Dry mouth [Unknown]

NARRATIVE: CASE EVENT DATE: 20220923
